FAERS Safety Report 9017106 (Version 2)
Quarter: 2013Q1

REPORT INFORMATION
  Report Type: Spontaneous
  Country: BR (occurrence: BR)
  Receive Date: 20130117
  Receipt Date: 20130219
  Transmission Date: 20140127
  Serious: Yes (Death, Other)
  Sender: FDA-Public Use
  Company Number: PHHY2013BR003775

PATIENT
  Sex: Male
  Weight: 70 kg

DRUGS (6)
  1. DIOVAN HCT [Suspect]
     Indication: BLOOD PRESSURE ABNORMAL
     Dosage: 1 DF (160 MG VALS/ 12.5 MG HCTZ), DAILY
     Route: 048
  2. DIOVAN [Suspect]
     Indication: BLOOD PRESSURE ABNORMAL
     Dosage: 160 MG, DAILY
     Route: 048
     Dates: start: 201210
  3. ZETSIM [Concomitant]
     Indication: BLOOD CHOLESTEROL ABNORMAL
     Dosage: 1 DF(10 MG EZET)/ 20 MG SIMV, DAILY
     Route: 048
  4. CLOPIDOGREL BISULFATE [Concomitant]
     Indication: ANTICOAGULANT THERAPY
     Dosage: 75 MG, DAILY
     Route: 048
  5. SIGMATRIOL [Concomitant]
     Indication: OSTEOPOROSIS
     Dosage: 0.25 UG, DAILY
     Route: 048
  6. SELOZOK [Concomitant]
     Dosage: 50 MG, DAILY
     Route: 048

REACTIONS (3)
  - Lymphoma [Fatal]
  - Tumour compression [Fatal]
  - Cough [Recovered/Resolved]
